FAERS Safety Report 6275598-1 (Version None)
Quarter: 2009Q3

REPORT INFORMATION
  Report Type: 
  Country: None (occurrence: None)
  Receive Date: 20090721
  Receipt Date: 20090714
  Transmission Date: 20100115
  Serious: Yes (Hospitalization, Disabling, Other)
  Sender: FDA-Public Use
  Company Number: US-ALLERGAN-0808567US

PATIENT
  Age: 46 Year
  Sex: Female

DRUGS (6)
  1. BOTOX [Suspect]
     Indication: NECK PAIN
     Dosage: 200 UNITS, SINGLE
     Route: 030
     Dates: start: 20071228, end: 20071228
  2. BOTOX [Suspect]
     Indication: MUSCULOSKELETAL PAIN
  3. BOTOX [Suspect]
     Indication: MUSCLE SPASMS
  4. METHADONE HCL [Concomitant]
     Indication: NECK PAIN
     Dosage: 20 MG, Q8HR
     Route: 048
  5. XANAX [Concomitant]
     Dosage: 0.25 MG, QD
  6. ESGIC-PLUS [Concomitant]
     Dosage: 2 TABS, Q8HR, PRN

REACTIONS (5)
  - DEPRESSION [None]
  - DRUG INEFFECTIVE [None]
  - MUSCULAR WEAKNESS [None]
  - NECK PAIN [None]
  - PAIN IN EXTREMITY [None]
